FAERS Safety Report 4338493-0 (Version None)
Quarter: 2004Q2

REPORT INFORMATION
  Report Type: 
  Country: None (occurrence: None)
  Receive Date: 20040414
  Receipt Date: 20021024
  Transmission Date: 20050107
  Serious: Yes (Hospitalization, Disabling)
  Sender: FDA-Public Use
  Company Number: FR-GLAXOSMITHKLINE-B0283491A

PATIENT
  Age: 52 Year
  Sex: Male
  Weight: 75 kg

DRUGS (6)
  1. EPIVIR [Suspect]
     Indication: HIV INFECTION
     Dosage: 300MG PER DAY
     Route: 048
     Dates: start: 19990814, end: 20010825
  2. ZIAGEN [Suspect]
     Indication: HIV INFECTION
     Dosage: 600MG PER DAY
     Route: 048
     Dates: start: 19990814, end: 20010825
  3. VIRACEPT [Suspect]
     Indication: HIV INFECTION
     Dosage: 1125MG TWICE PER DAY
     Route: 048
     Dates: start: 19980415, end: 19990814
  4. VIRAMUNE [Suspect]
     Indication: HIV INFECTION
     Dosage: 400MG PER DAY
     Route: 048
     Dates: start: 19990814, end: 19990925
  5. ZERIT [Suspect]
     Indication: HIV INFECTION
     Dosage: 40MG TWICE PER DAY
     Route: 048
     Dates: start: 19961115, end: 19990814
  6. VIDEX [Suspect]
     Indication: HIV INFECTION
     Route: 048
     Dates: start: 19960215, end: 20010825

REACTIONS (2)
  - MINERAL DEFICIENCY [None]
  - OSTEONECROSIS [None]
